FAERS Safety Report 5529612-9 (Version None)
Quarter: 2007Q4

REPORT INFORMATION
  Report Type: 
  Country: None (occurrence: None)
  Receive Date: 20071129
  Receipt Date: 20071119
  Transmission Date: 20080405
  Serious: Yes (Hospitalization)
  Sender: FDA-Public Use
  Company Number: AU-PFIZER INC-2007081556

PATIENT
  Sex: Male

DRUGS (5)
  1. CADUET [Suspect]
     Indication: HYPERTENSION
     Dosage: TEXT:5/20MG
     Route: 048
     Dates: start: 20070101, end: 20070701
  2. CADUET [Suspect]
     Indication: BLOOD CHOLESTEROL
  3. DIABEX [Concomitant]
     Indication: TYPE 2 DIABETES MELLITUS
  4. COVERSYL [Concomitant]
     Indication: HYPERTENSION
  5. RABEPRAZOLE SODIUM [Concomitant]
     Indication: GASTROOESOPHAGEAL REFLUX DISEASE

REACTIONS (9)
  - ERYTHEMA [None]
  - HYPERSENSITIVITY [None]
  - OEDEMA PERIPHERAL [None]
  - PYREXIA [None]
  - RASH [None]
  - SEPSIS [None]
  - SKIN CANCER [None]
  - SYNCOPE [None]
  - WHITE BLOOD CELL COUNT DECREASED [None]
